FAERS Safety Report 5372754-1 (Version None)
Quarter: 2007Q2

REPORT INFORMATION
  Report Type: 
  Country: None (occurrence: None)
  Receive Date: 20070627
  Receipt Date: 20070615
  Transmission Date: 20071010
  Serious: Yes (Other)
  Sender: FDA-Public Use
  Company Number: BR-PFIZER INC-2007038964

PATIENT
  Sex: Female
  Weight: 19 kg

DRUGS (9)
  1. LIPITOR [Suspect]
     Indication: DYSLIPIDAEMIA
     Route: 048
     Dates: start: 20070421, end: 20070430
  2. LIPITOR [Suspect]
     Indication: BLOOD CHOLESTEROL INCREASED
  3. LIPITOR [Suspect]
     Indication: BLOOD TRIGLYCERIDES INCREASED
  4. VITAMIN B COMPLEX CAP [Concomitant]
     Route: 048
     Dates: start: 20030101
  5. FERROUS SULFATE [Concomitant]
     Route: 048
     Dates: start: 20030101
  6. RIVOTRIL [Concomitant]
     Route: 048
  7. CALCIUM CARBONATE [Concomitant]
     Route: 048
  8. EPREX [Concomitant]
     Route: 058
     Dates: start: 20030101
  9. ROCALTROL [Concomitant]
     Route: 048

REACTIONS (3)
  - OEDEMA PERIPHERAL [None]
  - SKIN DISORDER [None]
  - SWELLING FACE [None]
